FAERS Safety Report 5790074-8 (Version None)
Quarter: 2008Q2

REPORT INFORMATION
  Report Type: 
  Country: None (occurrence: None)
  Receive Date: 20080626
  Receipt Date: 20080402
  Transmission Date: 20081010
  Serious: No
  Sender: FDA-Public Use
  Company Number: A0670553A

PATIENT
  Age: 57 Year
  Sex: Female

DRUGS (1)
  1. ALLI [Suspect]
     Dates: start: 20070617

REACTIONS (9)
  - BLOOD POTASSIUM INCREASED [None]
  - DRUG INEFFECTIVE [None]
  - FAECES DISCOLOURED [None]
  - FAECES PALE [None]
  - MALAISE [None]
  - NASOPHARYNGITIS [None]
  - STEATORRHOEA [None]
  - URINARY TRACT DISORDER [None]
  - WEIGHT INCREASED [None]
